FAERS Safety Report 23800221 (Version 1)
Quarter: 2024Q2

REPORT INFORMATION
  Report Type: Spontaneous
  Country: US (occurrence: None)
  Receive Date: 20240429
  Receipt Date: 20240429
  Transmission Date: 20240716
  Serious: Yes (Hospitalization)
  Sender: FDA-Public Use
  Company Number: None

PATIENT
  Sex: Male

DRUGS (2)
  1. LENALIDOMIDE [Suspect]
     Active Substance: LENALIDOMIDE
     Indication: Hypotension
     Dosage: 5MG ORAL??MISSING DOSES DUE TO HOSPITALIZATION
     Route: 048
     Dates: start: 202403
  2. LISINOPRIL [Concomitant]
     Route: 048
     Dates: start: 202403

REACTIONS (1)
  - Hypotension [None]
